FAERS Safety Report 8170882-9 (Version None)
Quarter: 2012Q1

REPORT INFORMATION
  Report Type: 
  Country: None (occurrence: None)
  Receive Date: 20120228
  Receipt Date: 20120217
  Transmission Date: 20120608
  Serious: Yes (Death)
  Sender: FDA-Public Use
  Company Number: JP-BRISTOL-MYERS SQUIBB COMPANY-16407017

PATIENT
  Age: 72 Year
  Sex: Male

DRUGS (2)
  1. METHOTREXATE [Suspect]
     Route: 048
  2. ORENCIA [Suspect]
     Indication: RHEUMATOID ARTHRITIS
     Dosage: 500MG TWICE IN THE FIRST MONTH (DEC11) AND ONCE IN JAN12, FROM 6DEC11
     Route: 041
     Dates: start: 20111206

REACTIONS (1)
  - INTERSTITIAL LUNG DISEASE [None]
